FAERS Safety Report 5278531-4 (Version None)
Quarter: 2007Q1

REPORT INFORMATION
  Report Type: 
  Country: None (occurrence: None)
  Receive Date: 20070328
  Receipt Date: 20070320
  Transmission Date: 20070707
  Serious: Yes (Hospitalization)
  Sender: FDA-Public Use
  Company Number: US-AMGEN-STX215845

PATIENT
  Sex: Female

DRUGS (2)
  1. ENBREL [Suspect]
     Indication: RHEUMATOID ARTHRITIS
     Route: 058
     Dates: start: 20031008
  2. METHOTREXATE [Concomitant]
     Route: 065
     Dates: start: 20061201

REACTIONS (7)
  - CHILLS [None]
  - DEHYDRATION [None]
  - NASOPHARYNGITIS [None]
  - NAUSEA [None]
  - RHEUMATOID ARTHRITIS [None]
  - URINARY TRACT INFECTION [None]
  - VOMITING [None]
